FAERS Safety Report 5352724-X (Version None)
Quarter: 2007Q2

REPORT INFORMATION
  Report Type: 
  Country: None (occurrence: None)
  Receive Date: 20070611
  Receipt Date: 20070604
  Transmission Date: 20071010
  Serious: Yes (Death)
  Sender: FDA-Public Use
  Company Number: DE-SHR-DE-2007-020794

PATIENT
  Age: 75 Year
  Sex: Male

DRUGS (5)
  1. MAGNEVIST [Suspect]
     Dosage: UNK, 1 DOSE
     Route: 042
     Dates: start: 20040803, end: 20040803
  2. MAGNEVIST [Suspect]
     Dosage: UNK, 1 DOSE
     Route: 042
     Dates: start: 20041202, end: 20041202
  3. MAGNEVIST [Suspect]
     Dosage: UNK, 1 DOSE
     Route: 042
     Dates: start: 20050525, end: 20050525
  4. MAGNEVIST [Suspect]
     Dosage: UNK, 1 DOSE
     Route: 042
     Dates: start: 20060309, end: 20060309
  5. MAGNEVIST [Suspect]
     Dosage: UNK, 1 DOSE
     Route: 042
     Dates: start: 20060518, end: 20060518

REACTIONS (1)
  - NEPHROGENIC FIBROSING DERMOPATHY [None]
